FAERS Safety Report 24353172 (Version 1)
Quarter: 2024Q3

REPORT INFORMATION
  Report Type: Spontaneous
  Country: US (occurrence: None)
  Receive Date: 20240923
  Receipt Date: 20240923
  Transmission Date: 20241017
  Serious: Yes (Hospitalization, Other)
  Sender: Public
  Company Number: None

PATIENT
  Age: 33 Year
  Sex: Male
  Weight: 160.4 kg

DRUGS (1)
  1. YESCARTA [Suspect]
     Active Substance: AXICABTAGENE CILOLEUCEL

REACTIONS (2)
  - Lymphocyte adoptive therapy [None]
  - Cytokine release syndrome [None]

NARRATIVE: CASE EVENT DATE: 20240725
